FAERS Safety Report 7575132-X (Version None)
Quarter: 2011Q2

REPORT INFORMATION
  Report Type: 
  Country: None (occurrence: None)
  Receive Date: 20110627
  Receipt Date: 20110624
  Transmission Date: 20111010
  Serious: Yes (Congenital Anomaly)
  Sender: FDA-Public Use
  Company Number: US-UCBSA-011511

PATIENT
  Sex: Female
  Weight: 4 kg

DRUGS (9)
  1. VITAMIN D [Concomitant]
     Route: 064
  2. KEPPRA [Suspect]
     Route: 064
     Dates: start: 20090504
  3. PRENATAL VITS [Concomitant]
     Route: 064
  4. CELEXA [Concomitant]
     Route: 064
     Dates: end: 20090801
  5. KEPPRA [Suspect]
     Route: 064
  6. LEVOTHYROXINE SODIUM [Concomitant]
     Route: 064
  7. ALBUTEROL SULFATE AUTOHALER [Concomitant]
     Dosage: PARENT ROUTE: INHALER
     Route: 064
  8. KEPPRA [Suspect]
     Route: 064
  9. FLU SHOT [Concomitant]
     Dosage: ONCE
     Route: 064
     Dates: start: 20091006, end: 20091006

REACTIONS (5)
  - VENTRICULAR SEPTAL DEFECT [None]
  - DRUG EXPOSURE DURING PREGNANCY [None]
  - CANDIDIASIS [None]
  - HAEMANGIOMA [None]
  - GENITAL LABIAL ADHESIONS [None]
